FAERS Safety Report 6639901-2 (Version None)
Quarter: 2010Q1

REPORT INFORMATION
  Report Type: 
  Country: None (occurrence: None)
  Receive Date: 20100318
  Receipt Date: 20100310
  Transmission Date: 20100710
  Serious: Yes (Hospitalization, Other)
  Sender: FDA-Public Use
  Company Number: DE-ABBOTT-10P-062-0617494-00

PATIENT
  Age: 70 Year
  Sex: Male

DRUGS (14)
  1. VALPROIC ACID [Suspect]
     Indication: PROPHYLAXIS
     Route: 048
     Dates: end: 20090519
  2. VALPROIC ACID [Interacting]
     Route: 048
     Dates: end: 20090526
  3. VALPROIC ACID [Interacting]
     Route: 048
     Dates: start: 20090527, end: 20090528
  4. VALPROIC ACID [Interacting]
     Route: 048
     Dates: start: 20090529, end: 20090603
  5. VALPROIC ACID [Interacting]
     Route: 048
     Dates: start: 20090604, end: 20090605
  6. QUILONUM [Interacting]
     Indication: DRUG USE FOR UNKNOWN INDICATION
     Route: 048
     Dates: end: 20090519
  7. EUNERPAN [Interacting]
     Indication: DRUG USE FOR UNKNOWN INDICATION
     Route: 048
     Dates: end: 20090524
  8. EUNERPAN [Interacting]
     Route: 048
     Dates: start: 20090525, end: 20090604
  9. EUNERPAN [Interacting]
     Route: 048
     Dates: start: 20090605, end: 20090609
  10. ENALAPRIL HCT [Interacting]
     Indication: DRUG USE FOR UNKNOWN INDICATION
     Dosage: 10 + 25 MG/DAY
     Route: 048
     Dates: end: 20090519
  11. HALOPERIDOL [Interacting]
     Indication: DRUG USE FOR UNKNOWN INDICATION
     Route: 030
  12. TORASEMIDE [Concomitant]
     Indication: DRUG USE FOR UNKNOWN INDICATION
     Dates: start: 20090519, end: 20090519
  13. ALLOPURINOL [Concomitant]
     Indication: DRUG USE FOR UNKNOWN INDICATION
     Dates: end: 20090519
  14. AKINETON [Concomitant]
     Indication: DRUG USE FOR UNKNOWN INDICATION

REACTIONS (3)
  - ATRIOVENTRICULAR BLOCK COMPLETE [None]
  - BRADYCARDIA [None]
  - RENAL FAILURE [None]
